FAERS Safety Report 14740967 (Version 1)
Quarter: 2018Q2

REPORT INFORMATION
  Report Type: Spontaneous
  Country: JP (occurrence: JP)
  Receive Date: 20180410
  Receipt Date: 20180410
  Transmission Date: 20180711
  Serious: Yes (Death)
  Sender: FDA-Public Use
  Company Number: JP-JNJFOC-20180407846

PATIENT
  Age: 97 Year
  Sex: Female
  Weight: 38 kg

DRUGS (3)
  1. CANAGLU [Suspect]
     Active Substance: CANAGLIFLOZIN
     Indication: TYPE 2 DIABETES MELLITUS
     Route: 048
     Dates: start: 20160227, end: 20180127
  2. TENELIA [Concomitant]
     Active Substance: TENELIGLIPTIN
     Indication: TYPE 2 DIABETES MELLITUS
     Route: 048
     Dates: start: 20131116, end: 20180127
  3. MICARDIS [Concomitant]
     Active Substance: TELMISARTAN
     Indication: TYPE 2 DIABETES MELLITUS
     Route: 048
     Dates: start: 20131116, end: 20180127

REACTIONS (1)
  - Intestinal obstruction [Fatal]

NARRATIVE: CASE EVENT DATE: 20180127
